FAERS Safety Report 6190083-3 (Version None)
Quarter: 2009Q2

REPORT INFORMATION
  Report Type: 
  Country: None (occurrence: None)
  Receive Date: 20090514
  Receipt Date: 20090401
  Transmission Date: 20091009
  Serious: No
  Sender: FDA-Public Use
  Company Number: US-BAYER-200911057BCC

PATIENT
  Sex: Female

DRUGS (3)
  1. ALEVE [Suspect]
     Indication: MIGRAINE
     Dosage: TOTAL DAILY DOSE: 440 MG  UNIT DOSE: 220 MG
     Route: 048
  2. EXCEDRIN [Concomitant]
     Indication: MIGRAINE
     Route: 065
  3. IMITREX [Concomitant]
     Indication: MIGRAINE
     Route: 065

REACTIONS (1)
  - MIGRAINE [None]
